FAERS Safety Report 10610069 (Version 2)
Quarter: 2014Q4

REPORT INFORMATION
  Report Type: Spontaneous
  Country: US (occurrence: None)
  Receive Date: 20141124
  Receipt Date: 20141209
  Transmission Date: 20150529
  Serious: Yes (Other)
  Sender: FDA-Public Use
  Company Number: 2014-US-015057

PATIENT
  Age: 45 Year
  Sex: Female
  Weight: 68.9 kg

DRUGS (3)
  1. XYREM [Suspect]
     Active Substance: SODIUM OXYBATE
     Indication: INSOMNIA
     Route: 048
     Dates: start: 20140926
  2. SEROQUEL [Concomitant]
     Active Substance: QUETIAPINE FUMARATE
  3. SEROQUEL [Concomitant]
     Active Substance: QUETIAPINE FUMARATE

REACTIONS (5)
  - Suicidal ideation [None]
  - Homicidal ideation [None]
  - Thinking abnormal [None]
  - Off label use [None]
  - Hallucination, auditory [None]

NARRATIVE: CASE EVENT DATE: 20141031
